FAERS Safety Report 21312947 (Version 1)
Quarter: 2022Q3

REPORT INFORMATION
  Report Type: Spontaneous
  Country: GB (occurrence: GB)
  Receive Date: 20220909
  Receipt Date: 20220909
  Transmission Date: 20221026
  Serious: Yes (Other)
  Sender: FDA-Public Use
  Company Number: GB-ROCHE-2096416

PATIENT
  Age: 62 Year
  Sex: Female

DRUGS (17)
  1. DOCETAXEL [Suspect]
     Active Substance: DOCETAXEL
     Indication: Breast cancer
     Dosage: 140 MG, Q3W
     Route: 042
     Dates: start: 20170330, end: 20170601
  2. DOCETAXEL [Suspect]
     Active Substance: DOCETAXEL
     Dosage: 106 MG, Q3W
     Route: 042
     Dates: start: 20170601, end: 20170720
  3. TRASTUZUMAB [Suspect]
     Active Substance: TRASTUZUMAB
     Indication: Breast cancer
     Dosage: 588 MG, Q3W
     Route: 042
     Dates: start: 20170330
  4. TRASTUZUMAB [Suspect]
     Active Substance: TRASTUZUMAB
     Dosage: 588 MG, Q3W
     Route: 042
     Dates: start: 20181115
  5. PERTUZUMAB [Suspect]
     Active Substance: PERTUZUMAB
     Indication: Breast cancer
     Dosage: 840 MG, Q3W
     Route: 042
     Dates: start: 20170330, end: 20170330
  6. PERTUZUMAB [Suspect]
     Active Substance: PERTUZUMAB
     Dosage: 420 MG, Q3W
     Route: 042
     Dates: start: 20180420, end: 20181025
  7. BECLOMETHASONE [Concomitant]
     Active Substance: BECLOMETHASONE
  8. CHOLESTYRAMINE [Concomitant]
     Active Substance: CHOLESTYRAMINE
  9. DENOSUMAB [Concomitant]
     Active Substance: DENOSUMAB
  10. FOLIC ACID [Concomitant]
     Active Substance: FOLIC ACID
  11. HYDROXOCOBALAMIN [Concomitant]
     Active Substance: HYDROXOCOBALAMIN
  12. OMEPRAZOLE [Concomitant]
     Active Substance: OMEPRAZOLE
  13. PREGABALIN [Concomitant]
     Active Substance: PREGABALIN
  14. SULFASALAZINE [Concomitant]
     Active Substance: SULFASALAZINE
  15. VENTOLIN [Concomitant]
     Active Substance: ALBUTEROL SULFATE
  16. MORPHINE SULFATE [Concomitant]
     Active Substance: MORPHINE SULFATE
  17. CAPECITABINE [Concomitant]
     Active Substance: CAPECITABINE
     Dosage: 2300 MG, BID
     Route: 048

REACTIONS (5)
  - Sarcoma [Not Recovered/Not Resolved]
  - Cellulitis [Unknown]
  - Localised infection [Unknown]
  - Neutrophil count decreased [Recovered/Resolved]
  - Diarrhoea [Recovered/Resolved]

NARRATIVE: CASE EVENT DATE: 20170711
